FAERS Safety Report 6409897-7 (Version None)
Quarter: 2009Q4

REPORT INFORMATION
  Report Type: 
  Country: None (occurrence: None)
  Receive Date: 20091022
  Receipt Date: 20091013
  Transmission Date: 20100525
  Serious: Yes (Congenital Anomaly)
  Sender: FDA-Public Use
  Company Number: JP-ABBOTT-09P-087-0602992-00

PATIENT
  Age: 1 Day
  Sex: Female

DRUGS (1)
  1. CLARITH [Suspect]
     Indication: DRUG EXPOSURE DURING PREGNANCY
     Route: 064

REACTIONS (3)
  - BRADYCARDIA [None]
  - CLEFT LIP [None]
  - DRUG EXPOSURE DURING PREGNANCY [None]
